FAERS Safety Report 6715488-0 (Version None)
Quarter: 2010Q2

REPORT INFORMATION
  Report Type: 
  Country: None (occurrence: None)
  Receive Date: 20100507
  Receipt Date: 20100429
  Transmission Date: 20101027
  Serious: Yes (Death, Hospitalization, Other)
  Sender: FDA-Public Use
  Company Number: DE-ROCHE-488779

PATIENT
  Age: 65 Year
  Sex: Female
  Weight: 64 kg

DRUGS (9)
  1. CAPECITABINE [Suspect]
     Route: 048
     Dates: start: 20060327, end: 20060502
  2. CAPECITABINE [Suspect]
     Dosage: FREQUENCY REPORTED:D1-14 Q21 D
     Route: 048
     Dates: start: 20060327, end: 20060806
  3. CAPECITABINE [Suspect]
     Dosage: FREQUENCY REPORTED:D1-14 Q21 D
     Route: 048
     Dates: start: 20060419, end: 20060502
  4. CAPECITABINE [Suspect]
     Dosage: FREQUENCY REPORTED:D1-14 Q21 D
     Route: 048
     Dates: start: 20070123, end: 20070521
  5. CAPECITABINE [Suspect]
     Route: 048
     Dates: start: 20080310, end: 20080908
  6. OMEPRAZOLE [Concomitant]
     Route: 048
     Dates: start: 20060324
  7. IBUPROFEN [Concomitant]
     Indication: PAIN
     Route: 048
     Dates: start: 20061201
  8. FORTECORTIN [Concomitant]
     Indication: NAUSEA
     Route: 042
     Dates: start: 20051201
  9. BONDRONAT [Concomitant]
     Route: 042
     Dates: start: 20040901

REACTIONS (9)
  - CONTRALATERAL BREAST CANCER [None]
  - DYSPNOEA [None]
  - ERYTHEMA [None]
  - LUMBAR VERTEBRAL FRACTURE [None]
  - MALIGNANT NEOPLASM PROGRESSION [None]
  - NEOPLASM PROGRESSION [None]
  - PALMAR-PLANTAR ERYTHRODYSAESTHESIA SYNDROME [None]
  - PLEURAL EFFUSION [None]
  - THORACIC VERTEBRAL FRACTURE [None]
